FAERS Safety Report 6186645-X (Version None)
Quarter: 2009Q2

REPORT INFORMATION
  Report Type: 
  Country: None (occurrence: None)
  Receive Date: 20090512
  Receipt Date: 20090501
  Transmission Date: 20091009
  Serious: Yes (Other)
  Sender: FDA-Public Use
  Company Number: US-BIOGENIDEC-2008BI011311

PATIENT
  Age: 26 Year
  Sex: Female

DRUGS (2)
  1. TYSABRI [Suspect]
     Indication: MULTIPLE SCLEROSIS
     Route: 042
     Dates: start: 20070913, end: 20080411
  2. TYSABRI [Suspect]
     Route: 042
     Dates: start: 20081113

REACTIONS (6)
  - ANXIETY [None]
  - DERMATITIS [None]
  - DYSPLASTIC NAEVUS SYNDROME [None]
  - FOLLICULITIS [None]
  - RASH PRURITIC [None]
  - THYROID CANCER [None]
